FAERS Safety Report 4746407-4 (Version None)
Quarter: 2005Q3

REPORT INFORMATION
  Report Type: 
  Country: None (occurrence: None)
  Receive Date: 20050815
  Receipt Date: 20050804
  Transmission Date: 20060218
  Serious: Yes (Other)
  Sender: FDA-Public Use
  Company Number: 2005104808

PATIENT
  Age: 59 Year
  Sex: Female
  Weight: 65 kg

DRUGS (3)
  1. ZOLOFT [Suspect]
     Indication: DEPRESSION
     Dosage: 100 MG (100 MG, 1 IN 1 D)
     Dates: start: 20050426, end: 20050101
  2. SULFASALAZINE [Suspect]
     Indication: ILL-DEFINED DISORDER
     Dates: start: 20040721, end: 20040823
  3. PREDNISONE [Suspect]
     Indication: ILL-DEFINED DISORDER

REACTIONS (9)
  - CHRONIC FATIGUE SYNDROME [None]
  - COLITIS [None]
  - CONSTIPATION [None]
  - DIARRHOEA [None]
  - HEADACHE [None]
  - HEPATOCELLULAR DAMAGE [None]
  - MUSCLE SPASMS [None]
  - RED BLOOD CELL ABNORMALITY [None]
  - RENAL DISORDER [None]
